FAERS Safety Report 11589901 (Version 3)
Quarter: 2019Q3

REPORT INFORMATION
  Report Type: Spontaneous
  Country: US (occurrence: US)
  Receive Date: 20151002
  Receipt Date: 20190828
  Transmission Date: 20191004
  Serious: Yes (Death, Hospitalization, Other)
  Sender: FDA-Public Use
  Company Number: US-009507513-1510USA000896

PATIENT
  Sex: Female
  Weight: 56.69 kg

DRUGS (1)
  1. JANUVIA [Suspect]
     Active Substance: SITAGLIPTIN PHOSPHATE
     Indication: TYPE 2 DIABETES MELLITUS
     Dosage: 100 MG ONCE DAILY
     Route: 048
     Dates: start: 20070215, end: 201108

REACTIONS (11)
  - Degenerative bone disease [Unknown]
  - Aortic arteriosclerosis [Unknown]
  - Gallbladder disorder [Unknown]
  - Ovarian cyst [Unknown]
  - Hypertension [Unknown]
  - Anaemia [Not Recovered/Not Resolved]
  - Pancreatic carcinoma metastatic [Fatal]
  - Diverticulum [Unknown]
  - Deep vein thrombosis [Unknown]
  - Metastases to liver [Fatal]
  - Iron deficiency [Not Recovered/Not Resolved]

NARRATIVE: CASE EVENT DATE: 20081013
